FAERS Safety Report 10196228 (Version 1)
Quarter: 2020Q3

REPORT INFORMATION
  Report Type: Spontaneous
  Country: IT (occurrence: None)
  Receive Date: 20140520
  Receipt Date: 20140520
  Transmission Date: 20201104
  Serious: Yes (Hospitalization)
  Sender: FDA-Public Use
  Company Number: B0962899A

PATIENT
  Sex: Male

DRUGS (8)
  1. BECONASE AQ [Suspect]
     Active Substance: BECLOMETHASONE DIPROPIONATE MONOHYDRATE
     Indication: PNEUMONITIS
     Dosage: SIX TIMES PER DAY
     Route: 055
  2. AMOXICILLIN AND CLAVULANATE POTASSIUM [Suspect]
     Active Substance: AMOXICILLIN\CLAVULANATE POTASSIUM
     Indication: PRODUCT USED FOR UNKNOWN INDICATION
  3. CEFTAZIDIME SODIUM [Suspect]
     Active Substance: CEFTAZIDIME SODIUM
     Indication: PRODUCT USED FOR UNKNOWN INDICATION
  4. AMIKACIN. [Suspect]
     Active Substance: AMIKACIN
     Indication: PNEUMOCOCCAL SEPSIS
  5. TEICOPLANIN [Suspect]
     Active Substance: TEICOPLANIN
     Indication: PRODUCT USED FOR UNKNOWN INDICATION
  6. NITRIC OXIDE. [Concomitant]
     Active Substance: NITRIC OXIDE
  7. AMPICILLIN TRIHYDRATE. [Suspect]
     Active Substance: AMPICILLIN TRIHYDRATE
     Indication: PNEUMOCOCCAL SEPSIS
  8. SALBUTAMOL SULPHATE [Concomitant]
     Active Substance: ALBUTEROL SULFATE

REACTIONS (2)
  - Candida pneumonia [None]
  - Drug ineffective [None]
